FAERS Safety Report 7513263-0 (Version None)
Quarter: 2011Q2

REPORT INFORMATION
  Report Type: 
  Country: None (occurrence: None)
  Receive Date: 20110531
  Receipt Date: 20110502
  Transmission Date: 20111010
  Serious: Yes (Hospitalization, Other)
  Sender: FDA-Public Use
  Company Number: US-BAYER-201026247NA

PATIENT
  Sex: Female
  Weight: 54.422 kg

DRUGS (6)
  1. YASMIN [Suspect]
     Route: 048
     Dates: start: 20080101, end: 20090801
  2. YAZ [Suspect]
     Indication: POLYCYSTIC OVARIES
  3. YAZ [Suspect]
     Indication: CONTRACEPTION
     Route: 048
     Dates: start: 20061001, end: 20080101
  4. YASMIN [Suspect]
     Indication: PRODUCT USED FOR UNKNOWN INDICATION
     Route: 048
     Dates: start: 20061001, end: 20080101
  5. YAZ [Suspect]
     Indication: ACNE
     Route: 048
     Dates: start: 20080101, end: 20090801
  6. YAZ [Suspect]
     Indication: PREMENSTRUAL SYNDROME

REACTIONS (2)
  - GALLBLADDER DISORDER [None]
  - APPENDICITIS [None]
